FAERS Safety Report 5200200-7 (Version None)
Quarter: 2006Q4

REPORT INFORMATION
  Report Type: 
  Country: None (occurrence: None)
  Receive Date: 20061016
  Receipt Date: 20060807
  Transmission Date: 20070319
  Serious: No
  Sender: FDA-Public Use
  Company Number: 2006SP002932

PATIENT
  Age: 55 Year
  Sex: Female
  Weight: 137.4399 kg

DRUGS (8)
  1. LUNESTA [Suspect]
     Indication: DRUG USE FOR UNKNOWN INDICATION
     Dosage: ORAL
     Route: 048
  2. BYETTA [Suspect]
     Indication: DIABETES MELLITUS NON-INSULIN-DEPENDENT
     Dosage: SEE IMAGE
     Route: 058
     Dates: start: 20060617, end: 20060713
  3. BYETTA [Suspect]
     Indication: DIABETES MELLITUS NON-INSULIN-DEPENDENT
     Dosage: SEE IMAGE
     Route: 058
     Dates: start: 20060714
  4. AMARYL [Concomitant]
  5. LANTUS [Concomitant]
  6. PAXIL [Concomitant]
  7. ZANAFLEX [Concomitant]
  8. PREVACID [Concomitant]

REACTIONS (2)
  - INSOMNIA [None]
  - NAUSEA [None]
